FAERS Safety Report 8800551 (Version 3)
Quarter: 2012Q4

REPORT INFORMATION
  Report Type: 
  Country: JP (occurrence: JP)
  Receive Date: 20120921
  Receipt Date: 20121126
  Transmission Date: 20130627
  Serious: Yes (Life-Threatening)
  Sender: FDA-Public Use
  Company Number: JP-GE HEALTHCARE MEDICAL DIAGNOSTICS-OMPQ-NO-1209S-0962

PATIENT
  Age: 92 Year
  Sex: Male

DRUGS (3)
  1. OMNIPAQUE [Suspect]
     Indication: PRODUCT USED FOR UNKNOWN INDICATION
     Route: 042
     Dates: start: 20120829, end: 20120829
  2. OMNIPAQUE [Suspect]
     Indication: DIAGNOSTIC PROCEDURE
  3. GEMZAR [Concomitant]

REACTIONS (8)
  - Anaphylactoid shock [Recovered/Resolved]
  - Femoral pulse decreased [Recovered/Resolved]
  - Respiratory arrest [Recovered/Resolved]
  - Blood pressure decreased [Recovered/Resolved]
  - Discomfort [Recovered/Resolved]
  - Ventricular tachycardia [Recovered/Resolved]
  - Blood pressure immeasurable [Recovered/Resolved]
  - Oedema peripheral [Recovered/Resolved]
